FAERS Safety Report 16350476 (Version 1)
Quarter: 2019Q2

REPORT INFORMATION
  Report Type: Spontaneous
  Country: TR (occurrence: TR)
  Receive Date: 20190524
  Receipt Date: 20190524
  Transmission Date: 20190711
  Serious: Yes (Hospitalization, Other)
  Sender: FDA-Public Use
  Company Number: TR-ASTELLAS-2019US021553

PATIENT
  Age: 67 Year
  Sex: Male

DRUGS (15)
  1. MYCOPHENOLATE [Suspect]
     Active Substance: MYCOPHENOLIC ACID
     Dosage: 500 MG, TWICE DAILY (PREOPERATIVE AT 06:00)
     Route: 048
  2. MYCOPHENOLATE [Suspect]
     Active Substance: MYCOPHENOLIC ACID
     Dosage: 500 MG, TWICE DAILY (POSTOPERATIVE DAY 1-7, 10 AM AND 10 PM)
     Route: 048
  3. PREDNISOLONE. [Suspect]
     Active Substance: PREDNISOLONE
     Dosage: 250 MG, UNKNOWN FREQ. (PREOPERATIVE AT 06:00)
     Route: 042
  4. PREDNISOLONE. [Suspect]
     Active Substance: PREDNISOLONE
     Dosage: 125 MG, UNKNOWN FREQ. (POSTOPERATIVE DAY 1)
     Route: 042
  5. PREDNISOLONE. [Suspect]
     Active Substance: PREDNISOLONE
     Dosage: 100 MG, UNKNOWN FREQ. (POSTOPERATIVE DAY 2)
     Route: 042
  6. PREDNISOLONE. [Suspect]
     Active Substance: PREDNISOLONE
     Dosage: 80 MG, UNKNOWN FREQ. (POSTOPERATIVE DAY 3)
     Route: 042
  7. PREDNISOLONE. [Suspect]
     Active Substance: PREDNISOLONE
     Dosage: 10 MG, UNKNOWN FREQ. (POSTOPERATIVE DAY 7)
     Route: 048
  8. TACROLIMUS. [Suspect]
     Active Substance: TACROLIMUS
     Indication: RENAL TRANSPLANT
     Route: 048
     Dates: start: 2008
  9. MYCOPHENOLATE [Suspect]
     Active Substance: MYCOPHENOLIC ACID
     Indication: RENAL TRANSPLANT
     Route: 048
     Dates: start: 2008
  10. PREDNISOLONE. [Suspect]
     Active Substance: PREDNISOLONE
     Dosage: 60 MG, UNKNOWN FREQ. (POSTOPERATIVE DAY 4)
     Route: 042
  11. PREDNISOLONE. [Suspect]
     Active Substance: PREDNISOLONE
     Indication: RENAL TRANSPLANT
     Route: 048
     Dates: start: 2008
  12. TACROLIMUS. [Suspect]
     Active Substance: TACROLIMUS
     Dosage: 1000 MG, TWICE DAILY (POSTOPERATIVE DAY 1-7, 8:00 AM AND 8:00 PM)
     Route: 048
  13. PREDNISOLONE. [Suspect]
     Active Substance: PREDNISOLONE
     Dosage: 40 MG, UNKNOWN FREQ. (POSTOPERATIVE DAY 5)
     Route: 042
  14. PREDNISOLONE. [Suspect]
     Active Substance: PREDNISOLONE
     Dosage: 20 MG, UNKNOWN FREQ. (POSTOPERATIVE DAY 6)
     Route: 042
  15. TACROLIMUS. [Suspect]
     Active Substance: TACROLIMUS
     Dosage: 1000 MG, TWICE DAILY (PREOPERATIVE 06:00)
     Route: 048

REACTIONS (1)
  - Coronary artery disease [Recovered/Resolved]
